FAERS Safety Report 24609946 (Version 1)
Quarter: 2024Q4

REPORT INFORMATION
  Report Type: Spontaneous
  Country: US (occurrence: US)
  Receive Date: 20241112
  Receipt Date: 20241112
  Transmission Date: 20250115
  Serious: No
  Sender: SANOFI AVENTIS
  Company Number: US-SA-2024SA324223

PATIENT
  Sex: Female
  Weight: 58.64 kg

DRUGS (1)
  1. DUPIXENT [Suspect]
     Active Substance: DUPILUMAB
     Indication: Dermatitis atopic
     Dosage: INJECT 300 MG (2 ML) UNDER THE SKIN EVERY 2 WEEKS
     Route: 058

REACTIONS (2)
  - Attention deficit hyperactivity disorder [Unknown]
  - Product dose omission in error [Unknown]
